FAERS Safety Report 19627963 (Version 1)
Quarter: 2021Q3

REPORT INFORMATION
  Report Type: Other
  Country: DE (occurrence: DE)
  Receive Date: 20210729
  Receipt Date: 20210729
  Transmission Date: 20211014
  Serious: Yes (Other)
  Sender: FDA-Public Use
  Company Number: DE-GLENMARK PHARMACEUTICALS-2021GMK066834

PATIENT

DRUGS (12)
  1. SIMVASTATIN. [Interacting]
     Active Substance: SIMVASTATIN
     Indication: SUPRAVENTRICULAR TACHYCARDIA
  2. METOPROLOL. [Interacting]
     Active Substance: METOPROLOL
     Indication: TACHYARRHYTHMIA
     Dosage: UNK
     Route: 048
     Dates: start: 2000
  3. NEBIVOLOL HYDROCHLORIDE [Suspect]
     Active Substance: NEBIVOLOL HYDROCHLORIDE
     Indication: TACHYARRHYTHMIA
     Dosage: 10 MILLIGRAM, QD (NEBIVOLOL 5 MG 1 ? 0 ? 1 ? 0)
     Route: 048
     Dates: start: 2000
  4. SIMVASTATIN. [Interacting]
     Active Substance: SIMVASTATIN
     Indication: TACHYARRHYTHMIA
  5. NEBIVOLOL HYDROCHLORIDE [Interacting]
     Active Substance: NEBIVOLOL HYDROCHLORIDE
     Indication: ATRIAL FIBRILLATION
  6. NEBIVOLOL HYDROCHLORIDE [Interacting]
     Active Substance: NEBIVOLOL HYDROCHLORIDE
     Indication: SUPRAVENTRICULAR TACHYCARDIA
  7. SIMVASTATIN. [Interacting]
     Active Substance: SIMVASTATIN
     Indication: HYPERTENSION
  8. NEBIVOLOL HYDROCHLORIDE [Interacting]
     Active Substance: NEBIVOLOL HYDROCHLORIDE
     Indication: HYPERTENSION
  9. SIMVASTATIN. [Interacting]
     Active Substance: SIMVASTATIN
     Indication: ATRIAL FIBRILLATION
     Dosage: 20 MILLIGRAM, OD (SIMVASTATIN 20 MG 0 ? 0 ? 0 ? 1 (BESCHWERDEN BEI ABWEICHUNG))
     Route: 048
     Dates: start: 2000
  10. METOPROLOL. [Interacting]
     Active Substance: METOPROLOL
     Indication: ATRIAL FIBRILLATION
  11. METOPROLOL. [Interacting]
     Active Substance: METOPROLOL
     Indication: SUPRAVENTRICULAR TACHYCARDIA
  12. METOPROLOL. [Interacting]
     Active Substance: METOPROLOL
     Indication: HYPERTENSION

REACTIONS (1)
  - Atrial fibrillation [Recovered/Resolved]

NARRATIVE: CASE EVENT DATE: 20200913
